FAERS Safety Report 16146456 (Version 1)
Quarter: 2019Q2

REPORT INFORMATION
  Report Type: Spontaneous
  Country: KR (occurrence: KR)
  Receive Date: 20190402
  Receipt Date: 20190402
  Transmission Date: 20190711
  Serious: Yes (Other)
  Sender: FDA-Public Use
  Company Number: KR-BAUSCH-BL-2019-009826

PATIENT
  Age: 61 Year
  Sex: Female

DRUGS (14)
  1. PREDNISOLONE. [Suspect]
     Active Substance: PREDNISOLONE
     Indication: BEHCET^S SYNDROME
     Route: 065
  2. PREDNISOLONE. [Suspect]
     Active Substance: PREDNISOLONE
     Dosage: GRADUAL TAPERING
     Route: 065
  3. 5-AMINOSALICYLIC ACID [Suspect]
     Active Substance: MESALAMINE
     Dosage: REDUCED DOSE
     Route: 065
  4. PREDNISOLONE. [Suspect]
     Active Substance: PREDNISOLONE
     Route: 065
  5. 5-AMINOSALICYLIC ACID [Suspect]
     Active Substance: MESALAMINE
     Route: 065
  6. 5-AMINOSALICYLIC ACID [Suspect]
     Active Substance: MESALAMINE
     Route: 065
  7. AZATHIOPRINE. [Suspect]
     Active Substance: AZATHIOPRINE
     Dosage: DOSE INCREASED
     Route: 065
  8. AZATHIOPRINE. [Suspect]
     Active Substance: AZATHIOPRINE
     Dosage: DOSE REDUCED AND MAINTAINED
     Route: 065
  9. 5-AMINOSALICYLIC ACID [Suspect]
     Active Substance: MESALAMINE
     Indication: BEHCET^S SYNDROME
     Route: 065
  10. PREDNISOLONE. [Suspect]
     Active Substance: PREDNISOLONE
     Dosage: DOSE WAS INCREASED
     Route: 065
  11. COLCHICINE. [Suspect]
     Active Substance: COLCHICINE
     Indication: BEHCET^S SYNDROME
     Route: 065
  12. AZATHIOPRINE. [Suspect]
     Active Substance: AZATHIOPRINE
     Dosage: DOSE INCREASED
     Route: 065
  13. PREDNISOLONE. [Suspect]
     Active Substance: PREDNISOLONE
     Dosage: DOSE WAS ADJUSTED TO A REDUCED LEVEL
     Route: 065
  14. AZATHIOPRINE. [Suspect]
     Active Substance: AZATHIOPRINE
     Indication: BEHCET^S SYNDROME
     Route: 065

REACTIONS (4)
  - Drug dependence [Unknown]
  - Treatment failure [Unknown]
  - Therapy non-responder [Unknown]
  - Osteoporosis [Unknown]
